FAERS Safety Report 8121968-6 (Version None)
Quarter: 2012Q1

REPORT INFORMATION
  Report Type: 
  Country: None (occurrence: None)
  Receive Date: 20120208
  Receipt Date: 20120203
  Transmission Date: 20120608
  Serious: Yes (Other)
  Sender: FDA-Public Use
  Company Number: DE-ROCHE-1021774

PATIENT
  Age: 38 Year
  Sex: Female
  Weight: 70 kg

DRUGS (12)
  1. MABTHERA [Suspect]
     Indication: PEMPHIGUS
     Dosage: 1000 MG
     Route: 042
     Dates: start: 20100517, end: 20100604
  2. PANTOPRAZOLE [Concomitant]
     Dates: start: 20100511
  3. CALCIUM [Concomitant]
     Route: 048
     Dates: start: 20100511
  4. NALOXONE HYDROCHLORIDE [Concomitant]
     Indication: PEMPHIGUS
     Route: 048
     Dates: start: 20100510
  5. AZATHIOPRINE [Suspect]
     Indication: PEMPHIGUS
     Route: 048
     Dates: start: 20100401
  6. AMPHOTERICIN B [Concomitant]
     Indication: PEMPHIGUS
     Route: 061
     Dates: start: 20100511
  7. MABTHERA [Suspect]
     Dosage: UNKNOWN
     Route: 042
     Dates: start: 20100604
  8. CANDIO-HERMAL PLUS [Concomitant]
     Route: 061
  9. LEVOTHYROXINE SODIUM [Concomitant]
     Indication: HYPOTHYROIDISM
     Route: 048
  10. ERGOCALCIFEROL [Concomitant]
     Route: 048
     Dates: start: 20100511
  11. BEPANTHEN [Concomitant]
     Indication: PEMPHIGUS
     Route: 061
     Dates: start: 20100511
  12. LIDOCAINE [Concomitant]
     Indication: PEMPHIGUS
     Route: 048
     Dates: start: 20100517, end: 20100517

REACTIONS (3)
  - LEUKOPENIA [None]
  - ANAEMIA [None]
  - PYREXIA [None]
